FAERS Safety Report 6750825-2 (Version None)
Quarter: 2010Q2

REPORT INFORMATION
  Report Type: 
  Country: None (occurrence: None)
  Receive Date: 20100602
  Receipt Date: 20100524
  Transmission Date: 20101027
  Serious: Yes (Hospitalization)
  Sender: FDA-Public Use
  Company Number: JP-SHIRE-SPV1-2010-01007

PATIENT

DRUGS (12)
  1. LANTHANUM CARBONATE [Suspect]
     Indication: HYPERPHOSPHATAEMIA
     Dates: start: 20090411, end: 20090515
  2. LANTHANUM CARBONATE [Suspect]
     Dates: start: 20090515
  3. CALCIUM CARBONATE [Concomitant]
     Dosage: 1000 MG, UNKNOWN
     Route: 048
  4. ROCALTROL [Concomitant]
     Dosage: .5 UG, UNKNOWN
     Route: 042
  5. PURSENNID                          /00142207/ [Concomitant]
     Indication: CONSTIPATION
     Dosage: 48 MG, UNKNOWN
     Route: 048
  6. BENZALIN [Concomitant]
     Indication: INSOMNIA
     Dosage: 5 MG, UNKNOWN
     Route: 048
  7. OMEPRAL                            /00661201/ [Concomitant]
     Indication: REFLUX OESOPHAGITIS
     Dosage: 10 MG, UNKNOWN
     Route: 048
  8. OMEPRAL                            /00661201/ [Concomitant]
     Indication: GASTRIC ULCER
  9. LACRIMIN [Concomitant]
     Indication: CATARACT
     Dosage: UNK, UNKNOWN
     Route: 031
  10. KARY UNI                           /00528801/ [Concomitant]
     Indication: CATARACT
     Dosage: UNK, UNKNOWN
     Route: 031
  11. CINACALCET HYDROCHLORIDE [Concomitant]
     Indication: HYPERPARATHYROIDISM SECONDARY
     Dosage: 25 MG, UNKNOWN
     Route: 048
     Dates: start: 20091113
  12. PHOSBLOCK [Concomitant]
     Indication: HYPERPHOSPHATAEMIA
     Dosage: 1500 MG, UNKNOWN
     Route: 048

REACTIONS (3)
  - CONTUSION [None]
  - DIZZINESS [None]
  - MENINGIOMA [None]
